FAERS Safety Report 8416945-1 (Version None)
Quarter: 2012Q2

REPORT INFORMATION
  Report Type: 
  Country: None (occurrence: None)
  Receive Date: 20120606
  Receipt Date: 20120605
  Transmission Date: 20120825
  Serious: No
  Sender: FDA-Public Use
  Company Number: US-PFIZER INC-2012135570

PATIENT
  Age: 46 Year
  Sex: Male
  Weight: 81.633 kg

DRUGS (3)
  1. ZOLOFT [Suspect]
     Indication: ANXIETY
     Dosage: 50 MG, DAILY
     Dates: start: 20120530, end: 20120605
  2. FLOVENT [Concomitant]
     Indication: ASTHMA
     Dosage: 200 MG, UNK
  3. XOPENEX [Concomitant]
     Indication: ASTHMA
     Dosage: UNK, AS NEEDED

REACTIONS (1)
  - BLISTER [None]
